FAERS Safety Report 9545727 (Version 2)
Quarter: 2013Q3

REPORT INFORMATION
  Report Type: Spontaneous
  Country: ZA (occurrence: ZA)
  Receive Date: 20130923
  Receipt Date: 20130923
  Transmission Date: 20140515
  Serious: Yes (Hospitalization)
  Sender: FDA-Public Use
  Company Number: ZA-WATSON-2013-13849

PATIENT
  Age: 66 Year
  Sex: Male

DRUGS (6)
  1. TRELSTAR (WATSON LABORATORIES) [Suspect]
     Indication: PROSTATE CANCER
     Dosage: 22.5 MG, EVERY 6 MONTHS
     Route: 058
     Dates: start: 20120913, end: 20130228
  2. MULTIVITAMINS [Concomitant]
     Indication: PRODUCT USED FOR UNKNOWN INDICATION
     Dosage: 1 TABLET, DAILY
     Route: 048
     Dates: start: 201207
  3. INDOMETACIN [Concomitant]
     Indication: OSTEOARTHRITIS
     Dosage: 50 MG, DAILY
     Route: 048
     Dates: start: 201202
  4. ENALAPRIL [Concomitant]
     Indication: HYPERTENSION
     Dosage: 5 MG, DAILY
     Route: 065
     Dates: start: 20121213, end: 20130630
  5. FUROSEMIDE [Concomitant]
     Indication: HYPERTENSION
     Dosage: 40 MG, DAILY
     Route: 065
     Dates: start: 20121213, end: 20130630
  6. SIMVASTATIN [Concomitant]
     Indication: HYPERCHOLESTEROLAEMIA
     Dosage: 20 MG, DAILY
     Route: 065
     Dates: start: 20130214

REACTIONS (1)
  - Myocardial ischaemia [Recovered/Resolved with Sequelae]
